FAERS Safety Report 19486879 (Version 1)
Quarter: 2021Q3

REPORT INFORMATION
  Report Type: Report from Study
  Country: CA (occurrence: CA)
  Receive Date: 20210702
  Receipt Date: 20210702
  Transmission Date: 20211014
  Serious: Yes (Death)
  Sender: FDA-Public Use
  Company Number: NVSC2020CA109797

PATIENT
  Age: 71 Year
  Sex: Male

DRUGS (1)
  1. COSENTYX [Suspect]
     Active Substance: SECUKINUMAB
     Indication: ANKYLOSING SPONDYLITIS
     Dosage: 300 MG, QMO
     Route: 058
     Dates: start: 20200123

REACTIONS (14)
  - Arthralgia [Unknown]
  - Tenderness [Unknown]
  - C-reactive protein increased [Unknown]
  - Fatigue [Unknown]
  - Neck pain [Unknown]
  - Vomiting [Unknown]
  - Back pain [Unknown]
  - Joint swelling [Unknown]
  - General physical health deterioration [Unknown]
  - Death [Fatal]
  - Gait disturbance [Unknown]
  - Pain [Not Recovered/Not Resolved]
  - Musculoskeletal stiffness [Unknown]
  - Balance disorder [Unknown]

NARRATIVE: CASE EVENT DATE: 20210619
